FAERS Safety Report 12282541 (Version 2)
Quarter: 2016Q3

REPORT INFORMATION
  Report Type: Report from Study
  Country: CO (occurrence: CO)
  Receive Date: 20160419
  Receipt Date: 20160721
  Transmission Date: 20161109
  Serious: Yes (Death, Hospitalization)
  Sender: FDA-Public Use
  Company Number: PHHY2016CO051047

PATIENT
  Age: 36 Year
  Sex: Female
  Weight: 39 kg

DRUGS (1)
  1. REVOLADE [Suspect]
     Active Substance: ELTROMBOPAG
     Indication: IMMUNE THROMBOCYTOPENIC PURPURA
     Dosage: 25 MG, QD
     Route: 048

REACTIONS (4)
  - Pneumonia [Unknown]
  - Malaise [Unknown]
  - Cough [Unknown]
  - Death [Fatal]

NARRATIVE: CASE EVENT DATE: 20160621
